FAERS Safety Report 4422808-9 (Version None)
Quarter: 2004Q3

REPORT INFORMATION
  Report Type: 
  Country: None (occurrence: None)
  Receive Date: 20040811
  Receipt Date: 20030709
  Transmission Date: 20050211
  Serious: Yes (Other)
  Sender: FDA-Public Use
  Company Number: PHNR2003AU01083

PATIENT
  Sex: Female

DRUGS (2)
  1. LAMISIL [Suspect]
     Dosage: UNSPECIFIED
     Route: 048
     Dates: start: 20030601, end: 20030701
  2. COMBIPATCH [Suspect]
     Indication: MENOPAUSAL SYMPTOMS
     Dosage: 50/140 MCG, TWICE A WEEK
     Route: 062
     Dates: start: 20030101

REACTIONS (2)
  - METRORRHAGIA [None]
  - UTERINE DILATION AND CURETTAGE [None]
